FAERS Safety Report 8608656-4 (Version None)
Quarter: 2012Q3

REPORT INFORMATION
  Report Type: 
  Country: None (occurrence: None)
  Receive Date: 20120821
  Receipt Date: 20120809
  Transmission Date: 20120928
  Serious: Yes (Other)
  Sender: FDA-Public Use
  Company Number: NL-PFIZER INC-2012143222

PATIENT
  Age: 69 Year
  Sex: Male

DRUGS (11)
  1. LIPITOR [Suspect]
     Dosage: UNK
  2. MONO-CEDOCARD [Concomitant]
     Dosage: 100 MG, UNK
  3. LASIX [Concomitant]
     Dosage: 40 MG, UNK
  4. ASCAL [Concomitant]
     Dosage: UNK
  5. SPIRIVA [Concomitant]
     Indication: CHRONIC OBSTRUCTIVE PULMONARY DISEASE
     Dosage: 18 UG, UNK
  6. SELOKEEN [Concomitant]
     Dosage: 200 MG, UNK
  7. DESLORATADINE [Concomitant]
     Dosage: 5 MG, AS NEEDED
  8. SYMBICORT [Concomitant]
     Indication: CHRONIC OBSTRUCTIVE PULMONARY DISEASE
     Dosage: UNK
  9. AVODART [Concomitant]
     Indication: PROSTATOMEGALY
     Dosage: 0.5 MG, UNK
  10. OMEPRAZOLE [Concomitant]
     Dosage: 20 MG, UNK
  11. TAMSULOSIN HYDROCHLORIDE [Concomitant]
     Indication: PROSTATOMEGALY
     Dosage: UNK

REACTIONS (9)
  - TONGUE OEDEMA [None]
  - FACE OEDEMA [None]
  - COUGH [None]
  - PRURITUS [None]
  - NAUSEA [None]
  - PHARYNGEAL OEDEMA [None]
  - SYNCOPE [None]
  - PRESYNCOPE [None]
  - CONSTIPATION [None]
